FAERS Safety Report 7327880-4 (Version None)
Quarter: 2011Q1

REPORT INFORMATION
  Report Type: 
  Country: None (occurrence: None)
  Receive Date: 20110303
  Receipt Date: 20110221
  Transmission Date: 20110831
  Serious: Yes (Other)
  Sender: FDA-Public Use
  Company Number: BR-JNJFOC-20101000672

PATIENT
  Sex: Female
  Weight: 49 kg

DRUGS (5)
  1. SYNTHROID [Concomitant]
     Route: 048
  2. SYNTHROID [Concomitant]
     Indication: HYPOTHYROIDISM
     Route: 048
  3. CLONAZEPAM [Concomitant]
     Indication: INSOMNIA
     Route: 048
  4. REMICADE [Suspect]
     Indication: PSORIATIC ARTHROPATHY
     Route: 042
  5. REMICADE [Suspect]
     Route: 042

REACTIONS (6)
  - PAIN IN EXTREMITY [None]
  - HYPERTHYROIDISM [None]
  - FATIGUE [None]
  - HEADACHE [None]
  - WEIGHT DECREASED [None]
  - SOMNOLENCE [None]
